FAERS Safety Report 6398877-6 (Version None)
Quarter: 2009Q4

REPORT INFORMATION
  Report Type: 
  Country: None (occurrence: None)
  Receive Date: 20091013
  Receipt Date: 20091005
  Transmission Date: 20100525
  Serious: Yes (Hospitalization, Other)
  Sender: FDA-Public Use
  Company Number: JP-PFIZER INC-2009275650

PATIENT
  Age: 55 Year

DRUGS (3)
  1. SILDENAFIL CITRATE [Suspect]
     Indication: PULMONARY ARTERIAL HYPERTENSION
     Route: 048
  2. EPOPROSTENOL [Suspect]
     Dosage: UNK
     Route: 042
     Dates: start: 20080601
  3. BOSENTAN [Concomitant]
     Indication: PULMONARY ARTERIAL HYPERTENSION
     Route: 048

REACTIONS (6)
  - CARDIAC FAILURE [None]
  - CARDIOMEGALY [None]
  - HYPOXIA [None]
  - PULMONARY CONGESTION [None]
  - PULMONARY HYPERTENSION [None]
  - VENTRICULAR HYPERTROPHY [None]
